FAERS Safety Report 12436273 (Version 3)
Quarter: 2018Q1

REPORT INFORMATION
  Report Type: Spontaneous
  Country: US (occurrence: US)
  Receive Date: 20160605
  Receipt Date: 20180311
  Transmission Date: 20180508
  Serious: Yes (Hospitalization, Disabling)
  Sender: FDA-Public Use
  Company Number: US-ENDO PHARMACEUTICALS INC.-2016-003654

PATIENT
  Age: 73 Year
  Sex: Male
  Weight: 88.44 kg

DRUGS (13)
  1. ANDROGEL [Suspect]
     Active Substance: TESTOSTERONE
     Dosage: 1%
     Route: 065
     Dates: start: 201201, end: 201204
  2. LORAZEPAM. [Concomitant]
     Active Substance: LORAZEPAM
     Indication: ANXIETY
     Dosage: UNK UNKNOWN, UNKNOWN
     Route: 065
     Dates: start: 201101
  3. CARVEDILOL. [Concomitant]
     Active Substance: CARVEDILOL
     Indication: HYPERTENSION
     Dosage: UNK UNKNOWN, UNKNOWN
     Route: 065
     Dates: start: 201101
  4. CLOPIDOGREL [Concomitant]
     Active Substance: CLOPIDOGREL BISULFATE
     Indication: CEREBROVASCULAR ACCIDENT
     Dosage: UNK UNKNOWN, UNKNOWN
     Route: 065
     Dates: start: 201206
  5. LEVOTHYROXINE. [Concomitant]
     Active Substance: LEVOTHYROXINE
     Indication: HYPOTHYROIDISM
     Dosage: UNK UNKNOWN, UNKNOWN
     Route: 065
     Dates: start: 201301
  6. CITALOPRAM [Concomitant]
     Active Substance: CITALOPRAM HYDROBROMIDE
     Indication: DEPRESSION
     Dosage: UNK UNKNOWN, UNKNOWN
     Route: 065
     Dates: start: 201101
  7. GEMFIBROZIL. [Concomitant]
     Active Substance: GEMFIBROZIL
     Indication: BLOOD CHOLESTEROL INCREASED
     Dosage: UNK UNKNOWN, UNKNOWN
     Route: 065
     Dates: start: 201104
  8. ANDROGEL [Suspect]
     Active Substance: TESTOSTERONE
     Indication: ANDROGEN REPLACEMENT THERAPY
     Dosage: 1%
     Route: 065
     Dates: start: 201102, end: 201109
  9. AXIRON [Suspect]
     Active Substance: TESTOSTERONE
     Indication: ANDROGEN REPLACEMENT THERAPY
     Dosage: UNK UNKNOWN, DAILY
     Route: 065
     Dates: start: 201108, end: 201112
  10. LOSARTAN. [Concomitant]
     Active Substance: LOSARTAN
     Indication: HYPERTENSION
     Dosage: UNK UNKNOWN, UNKNOWN
     Route: 065
     Dates: start: 201101
  11. FUROSEMIDE. [Concomitant]
     Active Substance: FUROSEMIDE
     Indication: SWELLING
     Dosage: UNK UNKNOWN, UNKNOWN
     Route: 065
     Dates: start: 201304
  12. ANDROGEL [Suspect]
     Active Substance: TESTOSTERONE
     Dosage: 1.62%
     Route: 065
     Dates: start: 201203, end: 201206
  13. TESTIM [Suspect]
     Active Substance: TESTOSTERONE
     Indication: ANDROGEN REPLACEMENT THERAPY
     Dosage: UNK UNKNOWN, DAILY
     Route: 062
     Dates: start: 201401, end: 20140327

REACTIONS (6)
  - Cardiac disorder [Not Recovered/Not Resolved]
  - Vertigo [Unknown]
  - Anaemia [Unknown]
  - Myocardial infarction [Not Recovered/Not Resolved]
  - Asthenia [Unknown]
  - Urinary tract infection [Unknown]

NARRATIVE: CASE EVENT DATE: 20140429
